FAERS Safety Report 19456889 (Version 1)
Quarter: 2021Q2

REPORT INFORMATION
  Report Type: Spontaneous
  Country: US (occurrence: US)
  Receive Date: 20210624
  Receipt Date: 20210624
  Transmission Date: 20210717
  Serious: No
  Sender: FDA-Public Use
  Company Number: US-ASTRAZENECA-2021A480901

PATIENT
  Age: 21033 Day

DRUGS (1)
  1. PULMICORT FLEXHALER [Suspect]
     Active Substance: BUDESONIDE
     Indication: BRONCHITIS
     Dosage: 180UG/INHAL TWO TIMES A DAY
     Route: 055
     Dates: start: 20210520

REACTIONS (3)
  - Coronavirus infection [Recovering/Resolving]
  - Device defective [Unknown]
  - Cough [Not Recovered/Not Resolved]

NARRATIVE: CASE EVENT DATE: 202105
